FAERS Safety Report 15680314 (Version 1)
Quarter: 2018Q4

REPORT INFORMATION
  Report Type: Spontaneous
  Country: US (occurrence: US)
  Receive Date: 20181202
  Receipt Date: 20181202
  Transmission Date: 20190205
  Serious: Yes (Other)
  Sender: FDA-Public Use
  Company Number: None

PATIENT
  Age: 57 Year
  Sex: Female
  Weight: 86.85 kg

DRUGS (1)
  1. CYMBALTA [Suspect]
     Active Substance: DULOXETINE HYDROCHLORIDE
     Indication: ARTHRALGIA
     Dosage: ?          QUANTITY:1 CAPSULE(S);?
     Route: 048
     Dates: start: 20171101, end: 20181101

REACTIONS (5)
  - Weight increased [None]
  - Emotional disorder [None]
  - Suicidal ideation [None]
  - Feeling abnormal [None]
  - Drug ineffective [None]

NARRATIVE: CASE EVENT DATE: 20181101
